FAERS Safety Report 4645121-3 (Version None)
Quarter: 2005Q2

REPORT INFORMATION
  Report Type: 
  Country: None (occurrence: None)
  Receive Date: 20050422
  Receipt Date: 20050411
  Transmission Date: 20051028
  Serious: Yes (Other)
  Sender: FDA-Public Use
  Company Number: 2005059610

PATIENT
  Age: 49 Year
  Sex: Male

DRUGS (2)
  1. PREDNISONE [Suspect]
     Indication: ILL-DEFINED DISORDER
  2. IMATINIB MESILATE (IMATINIB MESILATE) [Suspect]
     Indication: CHRONIC MYELOID LEUKAEMIA
     Dosage: ORAL
     Route: 048
     Dates: start: 20021101

REACTIONS (3)
  - GASTRIC ANTRAL VASCULAR ECTASIA [None]
  - GASTROINTESTINAL HAEMORRHAGE [None]
  - HAEMOGLOBIN DECREASED [None]
